FAERS Safety Report 7385823-1 (Version None)
Quarter: 2011Q1

REPORT INFORMATION
  Report Type: 
  Country: None (occurrence: None)
  Receive Date: 20110331
  Receipt Date: 20110328
  Transmission Date: 20110831
  Serious: No
  Sender: FDA-Public Use
  Company Number: US-PFIZER INC-2011068992

PATIENT
  Sex: Female

DRUGS (2)
  1. NEURONTIN [Suspect]
     Dosage: ONE TEASPOONFUL, 2X/DAY
     Route: 048
     Dates: start: 20060401
  2. NEURONTIN [Suspect]
     Dosage: TWO TEASPOONFUL, 2X/DAY
     Route: 048

REACTIONS (1)
  - PRODUCT TASTE ABNORMAL [None]
